FAERS Safety Report 5952046-X (Version None)
Quarter: 2008Q4

REPORT INFORMATION
  Report Type: 
  Country: None (occurrence: None)
  Receive Date: 20081113
  Receipt Date: 20080111
  Transmission Date: 20090506
  Serious: No
  Sender: FDA-Public Use
  Company Number: A0703715A

PATIENT
  Sex: Female

DRUGS (2)
  1. CARVEDILOL [Suspect]
     Indication: DRUG USE FOR UNKNOWN INDICATION
     Dates: start: 20070101
  2. COREG [Suspect]
     Indication: DRUG USE FOR UNKNOWN INDICATION

REACTIONS (1)
  - FATIGUE [None]
